FAERS Safety Report 16484464 (Version 1)
Quarter: 2019Q2

REPORT INFORMATION
  Report Type: Spontaneous
  Country: US (occurrence: US)
  Receive Date: 20190627
  Receipt Date: 20190627
  Transmission Date: 20190711
  Serious: No
  Sender: FDA-Public Use
  Company Number: US-009507513-1906USA008442

PATIENT
  Age: 27 Year

DRUGS (1)
  1. NEXPLANON [Suspect]
     Active Substance: ETONOGESTREL
     Dosage: UNK
     Dates: start: 2015, end: 20190531

REACTIONS (4)
  - Device deployment issue [Recovered/Resolved]
  - Incorrect product administration duration [Unknown]
  - Implant site pain [Unknown]
  - Complication associated with device [Recovered/Resolved]
